FAERS Safety Report 19770380 (Version 1)
Quarter: 2021Q3

REPORT INFORMATION
  Report Type: Spontaneous
  Country: US (occurrence: US)
  Receive Date: 20210831
  Receipt Date: 20210831
  Transmission Date: 20211014
  Serious: No
  Sender: FDA-Public Use
  Company Number: None

PATIENT
  Weight: 50.85 kg

DRUGS (14)
  1. CLOPIDOGREL [Concomitant]
     Active Substance: CLOPIDOGREL BISULFATE
  2. ATORVASTATIN [Concomitant]
     Active Substance: ATORVASTATIN
  3. TRIAMCINOLONE [Concomitant]
     Active Substance: TRIAMCINOLONE
  4. ASPIRIN. [Concomitant]
     Active Substance: ASPIRIN
  5. CARVEDILOL. [Concomitant]
     Active Substance: CARVEDILOL
  6. FOLIC ACID. [Concomitant]
     Active Substance: FOLIC ACID
  7. ONDANSETRON [Concomitant]
     Active Substance: ONDANSETRON
  8. PANTOPRAZOLE [Concomitant]
     Active Substance: PANTOPRAZOLE
  9. SULFAMETHOXAZOLE/ TRIMETHOPRIM [Concomitant]
     Active Substance: SULFAMETHOXAZOLE\TRIMETHOPRIM
  10. XALKORI [Suspect]
     Active Substance: CRIZOTINIB
     Indication: LUNG NEOPLASM MALIGNANT
     Route: 048
     Dates: start: 20201105
  11. POTASSIUM [Concomitant]
     Active Substance: POTASSIUM
  12. RAMIPRIL. [Concomitant]
     Active Substance: RAMIPRIL
  13. FUROSEMIDE. [Concomitant]
     Active Substance: FUROSEMIDE
  14. TRIAMTERENE. [Concomitant]
     Active Substance: TRIAMTERENE

REACTIONS (1)
  - Cellulitis [None]
